FAERS Safety Report 12117539 (Version 4)
Quarter: 2016Q2

REPORT INFORMATION
  Report Type: Report from Study
  Country: US (occurrence: US)
  Receive Date: 20160226
  Receipt Date: 20160429
  Transmission Date: 20160815
  Serious: Yes (Hospitalization, Other)
  Sender: FDA-Public Use
  Company Number: US-GILEAD-2016-0196788

PATIENT
  Age: 40 Year
  Sex: Female
  Weight: 49 kg

DRUGS (31)
  1. AZTREONAM LYSINE [Suspect]
     Active Substance: AZTREONAM LYSINE
     Indication: CYSTIC FIBROSIS LUNG
     Dosage: 75 MG, TID
     Route: 055
     Dates: start: 20150319
  2. VITAMIN D3 [Concomitant]
     Active Substance: CHOLECALCIFEROL
  3. KLONOPIN [Concomitant]
     Active Substance: CLONAZEPAM
  4. PAXIL [Concomitant]
     Active Substance: PAROXETINE HYDROCHLORIDE
  5. CEFTAZ [Concomitant]
  6. ALBUTEROL HFA [Concomitant]
     Active Substance: ALBUTEROL SULFATE
  7. ZITHROMAX [Concomitant]
     Active Substance: AZITHROMYCIN DIHYDRATE
  8. PULMOZYME [Concomitant]
     Active Substance: DORNASE ALFA
  9. LEFLUNOMIDE. [Concomitant]
     Active Substance: LEFLUNOMIDE
  10. ATARAX [Concomitant]
     Active Substance: HYDROXYZINE\HYDROXYZINE HYDROCHLORIDE
  11. ARAVA [Concomitant]
     Active Substance: LEFLUNOMIDE
  12. IVACAFTOR [Concomitant]
     Active Substance: IVACAFTOR
  13. PREDNISONE. [Concomitant]
     Active Substance: PREDNISONE
  14. COLISTIMETHATE [Concomitant]
     Active Substance: COLISTIMETHATE SODIUM
  15. LUNESTA [Concomitant]
     Active Substance: ESZOPICLONE
  16. KALYDECO [Concomitant]
     Active Substance: IVACAFTOR
  17. NEILMED SINUS RINSE [Concomitant]
     Active Substance: SODIUM BICARBONATE\SODIUM CHLORIDE
  18. METHOTREXATE [Concomitant]
     Active Substance: METHOTREXATE
  19. RHEUMATREX [Concomitant]
     Active Substance: METHOTREXATE SODIUM
  20. MIRALAX [Concomitant]
     Active Substance: POLYETHYLENE GLYCOL 3350
  21. SODIUM CHLORIDE W/WATER [Concomitant]
  22. ADVAIR HFA [Concomitant]
     Active Substance: FLUTICASONE PROPIONATE\SALMETEROL XINAFOATE
  23. MULTIVITAMIN WITH MINERALS [Concomitant]
     Active Substance: MINERALS\VITAMINS
  24. ERGOCALCIFEROL. [Concomitant]
     Active Substance: ERGOCALCIFEROL
  25. FLUTICASONE [Concomitant]
     Active Substance: FLUTICASONE\FLUTICASONE PROPIONATE
  26. OMEPRAZOLE. [Concomitant]
     Active Substance: OMEPRAZOLE
  27. AZTREONAM LYSINE [Suspect]
     Active Substance: AZTREONAM LYSINE
     Indication: CYSTIC FIBROSIS
  28. AZTREONAM LYSINE [Suspect]
     Active Substance: AZTREONAM LYSINE
     Indication: PSEUDOMONAS INFECTION
  29. CELEBREX [Concomitant]
     Active Substance: CELECOXIB
  30. DIFLUCAN [Concomitant]
     Active Substance: FLUCONAZOLE
  31. DELTASONE [Concomitant]
     Active Substance: PREDNISONE

REACTIONS (18)
  - Abdominal pain upper [Unknown]
  - Distal intestinal obstruction syndrome [Unknown]
  - Asthenia [Unknown]
  - Nausea [Unknown]
  - Pulmonary embolism [Unknown]
  - Pyrexia [Unknown]
  - Chest pain [Unknown]
  - Constipation [Unknown]
  - Dehydration [Unknown]
  - Dizziness postural [Unknown]
  - Haemoptysis [Unknown]
  - Infective pulmonary exacerbation of cystic fibrosis [Unknown]
  - Chronic sinusitis [Unknown]
  - Distal intestinal obstruction syndrome [Recovering/Resolving]
  - Nephrolithiasis [Unknown]
  - Presyncope [Unknown]
  - Bronchiectasis [Unknown]
  - Weight decreased [Unknown]

NARRATIVE: CASE EVENT DATE: 201511
